FAERS Safety Report 9717535 (Version 2)
Quarter: 2013Q4

REPORT INFORMATION
  Report Type: Spontaneous
  Country: US (occurrence: US)
  Receive Date: 20131127
  Receipt Date: 20131127
  Transmission Date: 20140711
  Serious: No
  Sender: FDA-Public Use
  Company Number: US-GILEAD-2009-0020552

PATIENT
  Age: 73 Year
  Sex: Female
  Weight: 60.33 kg

DRUGS (15)
  1. LETAIRIS [Suspect]
     Indication: PULMONARY ARTERIAL HYPERTENSION
     Route: 048
     Dates: start: 20090206, end: 20090211
  2. TOPROL XL [Concomitant]
  3. METOPROLOL SER [Concomitant]
  4. DIOVAN HCT [Concomitant]
  5. LANOXIN [Concomitant]
  6. COUMADIN [Concomitant]
  7. LASIX [Concomitant]
  8. XOPENEX HFA [Concomitant]
  9. NASONEX [Concomitant]
  10. ALLEGRA [Concomitant]
  11. BONIVA [Concomitant]
  12. TUMS [Concomitant]
  13. K-DUR [Concomitant]
  14. OSCAL + D [Concomitant]
  15. VITAMIN C [Concomitant]

REACTIONS (5)
  - Pruritus [Recovered/Resolved]
  - Hypotension [Recovered/Resolved]
  - Burning sensation [Recovered/Resolved]
  - Flushing [Recovered/Resolved]
  - Local swelling [Recovered/Resolved]
